FAERS Safety Report 6531800-X (Version None)
Quarter: 2010Q1

REPORT INFORMATION
  Report Type: 
  Country: None (occurrence: None)
  Receive Date: 20100108
  Receipt Date: 20100104
  Transmission Date: 20100710
  Serious: Yes (Other)
  Sender: FDA-Public Use
  Company Number: B0623559A

PATIENT
  Sex: Female

DRUGS (1)
  1. BECODISK [Suspect]
     Indication: ASTHMA
     Dosage: 4PUFF TWICE PER DAY
     Route: 055
     Dates: start: 20030101

REACTIONS (1)
  - ASTHMA [None]
